FAERS Safety Report 26209560 (Version 1)
Quarter: 2025Q4

REPORT INFORMATION
  Report Type: Spontaneous
  Country: US (occurrence: US)
  Receive Date: 20251229
  Receipt Date: 20251229
  Transmission Date: 20260117
  Serious: No
  Sender: XERIS PHARMACEUTICALS
  Company Number: US-BRIAN CONNER SVP QUALITY AND CHIEF COMPLIANCE OFFICER-2025XER00887

PATIENT
  Age: 64 Year
  Sex: Female
  Weight: 63.05 kg

DRUGS (6)
  1. GVOKE [Suspect]
     Active Substance: GLUCAGON
     Indication: Type 2 diabetes mellitus
     Dosage: 1 MG, ONCE
     Route: 058
     Dates: start: 202510
  2. VITAMINS [Concomitant]
     Active Substance: VITAMINS
  3. ROSUVASTATIN [Concomitant]
     Active Substance: ROSUVASTATIN
  4. FARXIGA [Concomitant]
     Active Substance: DAPAGLIFLOZIN PROPANEDIOL
  5. METOPROLOL [Concomitant]
     Active Substance: METOPROLOL
  6. AMLODIPINE [Concomitant]
     Active Substance: AMLODIPINE BESYLATE

REACTIONS (6)
  - Needle issue [Not Recovered/Not Resolved]
  - Product delivery mechanism issue [Not Recovered/Not Resolved]
  - Drug ineffective [Not Recovered/Not Resolved]
  - Wrong technique in product usage process [Not Recovered/Not Resolved]
  - Incorrect dose administered by device [Not Recovered/Not Resolved]
  - Injection site pain [Not Recovered/Not Resolved]

NARRATIVE: CASE EVENT DATE: 20251001
